FAERS Safety Report 10174952 (Version 1)
Quarter: 2014Q2

REPORT INFORMATION
  Report Type: Spontaneous
  Country: AU (occurrence: AU)
  Receive Date: 20140515
  Receipt Date: 20140515
  Transmission Date: 20141212
  Serious: Yes (Other)
  Sender: FDA-Public Use
  Company Number: AU-ACTAVIS PTY LTD-2014-10095

PATIENT
  Age: 79 Year
  Sex: Male

DRUGS (1)
  1. ZOLEDRONIC ACID (UNKNOWN) [Suspect]
     Indication: OSTEITIS DEFORMANS
     Dosage: UNKNOWN, 1 DOSE
     Route: 042

REACTIONS (1)
  - Myocarditis [Recovered/Resolved]
